FAERS Safety Report 17516398 (Version 2)
Quarter: 2020Q4

REPORT INFORMATION
  Report Type: Spontaneous
  Country: US (occurrence: US)
  Receive Date: 20200309
  Receipt Date: 20201229
  Transmission Date: 20210113
  Serious: No
  Sender: FDA-Public Use
  Company Number: US-PFIZER INC-2020098314

PATIENT
  Age: 76 Year
  Sex: Female

DRUGS (1)
  1. PREGABALIN. [Suspect]
     Active Substance: PREGABALIN
     Dosage: 100 MG, DAILY (TAKE 1 CAPSULE IN AM AND 3 CAPSULES IN PM DAILY)
     Route: 048

REACTIONS (3)
  - Dizziness [Unknown]
  - Diarrhoea [Unknown]
  - Pain in extremity [Unknown]
